FAERS Safety Report 5538444-7 (Version None)
Quarter: 2007Q4

REPORT INFORMATION
  Report Type: 
  Country: None (occurrence: None)
  Receive Date: 20071205
  Receipt Date: 20071119
  Transmission Date: 20080405
  Serious: Yes (Other)
  Sender: FDA-Public Use
  Company Number: 8028301

PATIENT
  Sex: Female

DRUGS (3)
  1. KEPPRA [Suspect]
  2. PHENYTOIN [Concomitant]
  3. CLOBAZAM [Concomitant]

REACTIONS (1)
  - LEUKOPENIA [None]
